FAERS Safety Report 4829076-4 (Version None)
Quarter: 2005Q4

REPORT INFORMATION
  Report Type: 
  Country: None (occurrence: None)
  Receive Date: 20051031
  Receipt Date: 20041109
  Transmission Date: 20060501
  Serious: Yes (Hospitalization)
  Sender: FDA-Public Use
  Company Number: 200418687US

PATIENT
  Age: 58 Year
  Sex: Male

DRUGS (13)
  1. ARAVA [Suspect]
     Indication: PSORIATIC ARTHROPATHY
     Dosage: 20 MG QD PO
     Route: 048
  2. PREDNISONE [Concomitant]
  3. PLAVIX [Concomitant]
  4. ASPIRIN [Concomitant]
  5. ISOSORBIDE MONONITRATE [Concomitant]
  6. DIOVAN [Concomitant]
  7. EZETIMIBE (ZETIA                /USA/) [Concomitant]
  8. PRAVASTATIN SODIUM (PRAVACHOL) [Concomitant]
  9. FOLIC ACID [Concomitant]
  10. SULAR [Concomitant]
  11. PLETAL [Concomitant]
  12. OMEPRAZOLE [Concomitant]
  13. HYDROCHLOROTHIAZIDE, BISOPROLOL FUMARATE (ZIAC) [Concomitant]

REACTIONS (1)
  - SUBCUTANEOUS ABSCESS [None]
